FAERS Safety Report 21313091 (Version 7)
Quarter: 2023Q1

REPORT INFORMATION
  Report Type: Report from Study
  Country: CO (occurrence: CO)
  Receive Date: 20220909
  Receipt Date: 20230317
  Transmission Date: 20230417
  Serious: Yes (Life-Threatening, Hospitalization)
  Sender: FDA-Public Use
  Company Number: CO-002147023-NVSC2022CO117599

PATIENT

DRUGS (4)
  1. RUXOLITINIB [Suspect]
     Active Substance: RUXOLITINIB
     Indication: Myelofibrosis
     Dosage: 20 MG, Q12H
     Route: 048
  2. RUXOLITINIB [Suspect]
     Active Substance: RUXOLITINIB
     Dosage: 2 DOSAGE FORM, Q12H (5 MG)
     Route: 048
  3. RUXOLITINIB [Suspect]
     Active Substance: RUXOLITINIB
     Dosage: 10 MG, QD
     Route: 048
  4. RUXOLITINIB [Suspect]
     Active Substance: RUXOLITINIB
     Dosage: UNK (BY MOUTH)
     Route: 048

REACTIONS (12)
  - COVID-19 [Unknown]
  - Full blood count decreased [Unknown]
  - Illness [Unknown]
  - Decreased immune responsiveness [Unknown]
  - Gastrointestinal bacterial infection [Unknown]
  - Renal failure [Unknown]
  - Respiratory failure [Unknown]
  - Inappropriate schedule of product administration [Unknown]
  - Sepsis [Unknown]
  - Device related infection [Unknown]
  - Staphylococcal bacteraemia [Unknown]
  - Malaise [Unknown]
